FAERS Safety Report 4702219-9 (Version None)
Quarter: 2005Q2

REPORT INFORMATION
  Report Type: 
  Country: None (occurrence: None)
  Receive Date: 20050627
  Receipt Date: 20050620
  Transmission Date: 20051028
  Serious: Yes (Death, Hospitalization)
  Sender: FDA-Public Use
  Company Number: 163-20785-05050353

PATIENT
  Age: 52 Year
  Sex: Male

DRUGS (4)
  1. THALOMID [Suspect]
     Indication: MULTIPLE MYELOMA
     Dosage: 200 MG, DAILY, ORAL
     Route: 048
     Dates: start: 20050211, end: 20050329
  2. THALOMID [Suspect]
     Route: 048
  3. MORPHINE [Suspect]
  4. DECADRON [Concomitant]

REACTIONS (4)
  - DISEASE PROGRESSION [None]
  - HALLUCINATION [None]
  - MYOCLONUS [None]
  - RASH ERYTHEMATOUS [None]
